FAERS Safety Report 5321767-4 (Version None)
Quarter: 2007Q2

REPORT INFORMATION
  Report Type: 
  Country: None (occurrence: None)
  Receive Date: 20070510
  Receipt Date: 20070428
  Transmission Date: 20071010
  Serious: Yes (Death, Other)
  Sender: FDA-Public Use
  Company Number: AR-PFIZER INC-2007033554

PATIENT
  Sex: Female
  Weight: 55 kg

DRUGS (3)
  1. SUTENT [Suspect]
     Dosage: DAILY DOSE:50MG-FREQ:INTERVAL: 4WEEKS ON/2 OFF
  2. ENALAPRIL [Concomitant]
  3. LEVOTHYROXINE SODIUM [Concomitant]

REACTIONS (5)
  - ANAEMIA [None]
  - LUNG DISORDER [None]
  - OEDEMA [None]
  - RESPIRATORY FAILURE [None]
  - THROMBOCYTOPENIA [None]
